FAERS Safety Report 4269770-X (Version None)
Quarter: 2004Q1

REPORT INFORMATION
  Report Type: 
  Country: None (occurrence: None)
  Receive Date: 20040113
  Receipt Date: 20031106
  Transmission Date: 20041129
  Serious: Yes (Other)
  Sender: FDA-Public Use
  Company Number: WAES 0311GBR00061

PATIENT
  Age: 41 Year
  Sex: Male
  Weight: 74 kg

DRUGS (6)
  1. AMPHOTERICIN B [Concomitant]
     Dates: start: 20030101, end: 20030101
  2. ABELCET [Concomitant]
     Dates: start: 20030101, end: 20030101
  3. AMBISOME [Concomitant]
     Indication: ANTIFUNGAL PROPHYLAXIS
     Dates: start: 20031016, end: 20031018
  4. ANTIMICROBIAL (UNSPECIFIED) [Concomitant]
  5. CANCIDAS [Suspect]
     Indication: ANTIFUNGAL PROPHYLAXIS
     Route: 042
     Dates: start: 20031027, end: 20031028
  6. CANCIDAS [Suspect]
     Route: 042
     Dates: start: 20031001, end: 20031001

REACTIONS (1)
  - BLISTER [None]
